FAERS Safety Report 10924477 (Version 2)
Quarter: 2015Q2

REPORT INFORMATION
  Report Type: Spontaneous
  Country: US (occurrence: US)
  Receive Date: 20150318
  Receipt Date: 20150524
  Transmission Date: 20150821
  Serious: No
  Sender: FDA-Public Use
  Company Number: US-JNJFOC-20130617133

PATIENT

DRUGS (2)
  1. NIZORAL [Suspect]
     Active Substance: KETOCONAZOLE
     Indication: DRUG LEVEL
     Dosage: FOR 9 DAYS (DAYS 1-9)
     Route: 065
  2. MIRABEGRON [Interacting]
     Active Substance: MIRABEGRON
     Indication: DRUG LEVEL
     Dosage: SINGLE DOSE, GIVEN ON DAY 1 OF PERIOD 1 AND CO ADMINISTERED ON DAY 4 OF PERIOD 2
     Route: 048

REACTIONS (5)
  - Nausea [Unknown]
  - Fatigue [Unknown]
  - Rhinorrhoea [Unknown]
  - Drug interaction [Unknown]
  - Headache [Unknown]
